FAERS Safety Report 19154504 (Version 1)
Quarter: 2021Q2

REPORT INFORMATION
  Report Type: Report from Study
  Country: US (occurrence: US)
  Receive Date: 20210419
  Receipt Date: 20210419
  Transmission Date: 20210717
  Serious: Yes (Death)
  Sender: FDA-Public Use
  Company Number: US-PFIZER INC-2021426398

PATIENT
  Sex: Female

DRUGS (2)
  1. CARBOPLATIN. [Suspect]
     Active Substance: CARBOPLATIN
     Indication: OVARIAN STROMAL CANCER
     Dosage: UNK, EVERY 3 WEEKS, (AUC=6)
     Route: 042
  2. PACLITAXEL. [Suspect]
     Active Substance: PACLITAXEL
     Indication: OVARIAN STROMAL CANCER
     Dosage: 175 MG/M2, CYCLIC, 6 CYCLES, EVERY 3 WEEKS
     Route: 042

REACTIONS (1)
  - Death [Fatal]
